FAERS Safety Report 13445903 (Version 1)
Quarter: 2017Q2

REPORT INFORMATION
  Report Type: Spontaneous
  Country: US (occurrence: US)
  Receive Date: 20170417
  Receipt Date: 20170417
  Transmission Date: 20170830
  Serious: No
  Sender: FDA-Public Use
  Company Number: US-BION-005926

PATIENT
  Age: 73 Year
  Sex: Male
  Weight: 83.91 kg

DRUGS (5)
  1. ZIAC [Concomitant]
     Active Substance: BISOPROLOL FUMARATE\HYDROCHLOROTHIAZIDE
  2. PRILOSEC [Concomitant]
     Active Substance: OMEPRAZOLE MAGNESIUM
  3. ALEVE [Suspect]
     Active Substance: NAPROXEN SODIUM
     Indication: ARTHRALGIA
     Dosage: FOR ABOUT 3 WEEK NOW
     Route: 048
     Dates: start: 2016
  4. PRAVASTATIN. [Concomitant]
     Active Substance: PRAVASTATIN
  5. ZYRTEC [Concomitant]
     Active Substance: CETIRIZINE HYDROCHLORIDE

REACTIONS (1)
  - Incorrect drug administration duration [Not Recovered/Not Resolved]
